FAERS Safety Report 17567477 (Version 2)
Quarter: 2020Q2

REPORT INFORMATION
  Report Type: Spontaneous
  Country: US (occurrence: US)
  Receive Date: 20200320
  Receipt Date: 20200521
  Transmission Date: 20200713
  Serious: Yes (Hospitalization)
  Sender: FDA-Public Use
  Company Number: US-VERTEX PHARMACEUTICALS-2019-011810

PATIENT
  Age: 47 Year
  Sex: Female

DRUGS (1)
  1. SYMDEKO [Suspect]
     Active Substance: IVACAFTOR\TEZACAFTOR
     Indication: CYSTIC FIBROSIS
     Dosage: 100MG TEZACAFTOR/150MG IVACAFTOR AM; 150MG IVACAFTOR PM, REGULAR DOSE
     Route: 048
     Dates: start: 20180505, end: 201912

REACTIONS (2)
  - Lung disorder [Unknown]
  - Bacterial disease carrier [Unknown]

NARRATIVE: CASE EVENT DATE: 201911
